FAERS Safety Report 5554866-2 (Version None)
Quarter: 2007Q4

REPORT INFORMATION
  Report Type: 
  Country: None (occurrence: None)
  Receive Date: 20071211
  Receipt Date: 20071203
  Transmission Date: 20080405
  Serious: No
  Sender: FDA-Public Use
  Company Number: JPI-P-002571

PATIENT
  Age: 36 Year
  Sex: Male

DRUGS (3)
  1. XYREM [Suspect]
     Indication: INSOMNIA
     Dosage: 4. 5 GM (4.5 GM, 1 IN 1 D), ORAL
     Dates: start: 20071201, end: 20071201
  2. ALPRAZOLAM [Concomitant]
  3. GABAPENTIN [Concomitant]

REACTIONS (9)
  - DEHYDRATION [None]
  - DIZZINESS [None]
  - HANGOVER [None]
  - HEADACHE [None]
  - INCORRECT DOSE ADMINISTERED [None]
  - INSOMNIA [None]
  - MALAISE [None]
  - MICTURITION URGENCY [None]
  - PRESYNCOPE [None]
